FAERS Safety Report 15101848 (Version 1)
Quarter: 2018Q3

REPORT INFORMATION
  Report Type: Spontaneous
  Country: US (occurrence: US)
  Receive Date: 20180703
  Receipt Date: 20180703
  Transmission Date: 20181010
  Serious: Yes (Other)
  Sender: FDA-Public Use
  Company Number: US-APOTEX-2018AP016411

PATIENT
  Age: 49 Year
  Sex: Male

DRUGS (4)
  1. AMOXICLAV [Concomitant]
     Active Substance: AMOXICILLIN\CLAVULANIC ACID
     Indication: PRODUCT USED FOR UNKNOWN INDICATION
     Dosage: 1 DF, BID
     Route: 065
  2. FLUTICASONE PROPIONATE NASAL SPRAY USP [Suspect]
     Active Substance: FLUTICASONE PROPIONATE
     Indication: SINUSITIS
     Dosage: 1 SPRAY EACH NOSTRIL ONCE A DAY)
     Route: 045
     Dates: start: 2017
  3. FLUTICASONE PROPIONATE NASAL SPRAY USP [Suspect]
     Active Substance: FLUTICASONE PROPIONATE
     Indication: EPISTAXIS
     Dosage: 1 SPRAY EACH NOSTRIL ONCE A DAY
     Route: 045
     Dates: start: 2017
  4. TRIUMEQ [Concomitant]
     Active Substance: ABACAVIR SULFATE\DOLUTEGRAVIR SODIUM\LAMIVUDINE
     Indication: PRODUCT USED FOR UNKNOWN INDICATION
     Dosage: UNK, QD
     Route: 065

REACTIONS (3)
  - Rhinorrhoea [Not Recovered/Not Resolved]
  - Rhinalgia [Not Recovered/Not Resolved]
  - Migraine [Not Recovered/Not Resolved]

NARRATIVE: CASE EVENT DATE: 201801
